FAERS Safety Report 21245149 (Version 1)
Quarter: 2022Q3

REPORT INFORMATION
  Report Type: Report from Study
  Country: US (occurrence: US)
  Receive Date: 20220823
  Receipt Date: 20220823
  Transmission Date: 20221027
  Serious: No
  Sender: FDA-Public Use
  Company Number: US-NOVARTISTESTPH-NVSC2022US188433

PATIENT
  Sex: Male

DRUGS (1)
  1. ENTRESTO [Suspect]
     Active Substance: SACUBITRIL\VALSARTAN
     Indication: Product used for unknown indication
     Dosage: 1.5 DOSAGE FORM (97/103MG FULL TAB IN THE MORNING AND HALF TAB IN THE EVENING)
     Route: 048
     Dates: start: 2020

REACTIONS (2)
  - Blood potassium increased [Unknown]
  - Wrong technique in product usage process [Unknown]
